FAERS Safety Report 18557542 (Version 2)
Quarter: 2021Q1

REPORT INFORMATION
  Report Type: Spontaneous
  Country: CA (occurrence: CA)
  Receive Date: 20201130
  Receipt Date: 20210225
  Transmission Date: 20210419
  Serious: Yes (Death)
  Sender: FDA-Public Use
  Company Number: CA-CELLTRION INC.-2017CA012418

PATIENT

DRUGS (41)
  1. INFLECTRA [Suspect]
     Active Substance: INFLIXIMAB-DYYB
     Dosage: 333 MG, EVERY 8 WEEKS
     Route: 042
     Dates: start: 20170208, end: 20170825
  2. INFLECTRA [Suspect]
     Active Substance: INFLIXIMAB-DYYB
     Dosage: 545 MG, EVERY 8 WEEKS
     Route: 042
     Dates: start: 20171019, end: 20180807
  3. INFLECTRA [Suspect]
     Active Substance: INFLIXIMAB-DYYB
     Dosage: 763 MG, EVERY 8 WEEKS
     Route: 042
     Dates: start: 20190128
  4. INFLECTRA [Suspect]
     Active Substance: INFLIXIMAB-DYYB
     Dosage: 766MG (7 MG/KG, 8 VIALS), EVERY 8 WEEKS
     Route: 042
     Dates: start: 20190325, end: 20200603
  5. PLAQUENIL [Concomitant]
     Active Substance: HYDROXYCHLOROQUINE SULFATE
     Indication: RHEUMATOID ARTHRITIS
     Dosage: 200 MG, 2X/DAY
     Route: 048
     Dates: start: 201211
  6. REACTINE [Concomitant]
     Indication: PREMEDICATION
     Dosage: 20 MG, UNK (PRE?INFLECTRA)
     Route: 048
  7. REACTINE [Concomitant]
     Dosage: 20 MG, UNK (PRE?INFLECTRA)
     Route: 048
     Dates: start: 20190926
  8. SOLU?CORTEF [Concomitant]
     Active Substance: HYDROCORTISONE SODIUM SUCCINATE
     Dosage: 100 MG, UNK
     Route: 042
     Dates: start: 20190926
  9. INFLECTRA [Suspect]
     Active Substance: INFLIXIMAB-DYYB
     Dosage: UNK
     Dates: start: 20180214
  10. INFLECTRA [Suspect]
     Active Substance: INFLIXIMAB-DYYB
     Dosage: 763 MG, EVERY 8 WEEKS
     Route: 042
     Dates: start: 20181002, end: 20190128
  11. INFLECTRA [Suspect]
     Active Substance: INFLIXIMAB-DYYB
     Dosage: 545 MG, EVERY 8 WEEKS
     Dates: start: 20190128
  12. SULFASALAZINE. [Concomitant]
     Active Substance: SULFASALAZINE
     Dosage: 1 G, 2X/DAY
     Dates: start: 20150602
  13. TEVA PANTOPRAZOLE [Concomitant]
     Active Substance: PANTOPRAZOLE SODIUM
     Dosage: 40 MG, 1X/DAY
     Route: 048
  14. INFLECTRA [Suspect]
     Active Substance: INFLIXIMAB-DYYB
     Dosage: 545 MG, EVERY 8 WEEKS
     Route: 042
     Dates: start: 20180808
  15. INFLECTRA [Suspect]
     Active Substance: INFLIXIMAB-DYYB
     Dosage: 766MG (8 VIALS), EVERY 8 WEEKS
     Route: 042
     Dates: start: 20190926
  16. NORMAL SALINE [Concomitant]
     Active Substance: SODIUM CHLORIDE
     Dosage: 250 ML, UNK
  17. INFLECTRA [Suspect]
     Active Substance: INFLIXIMAB-DYYB
     Dosage: 545 MG, EVERY 8 WEEKS
     Route: 042
     Dates: start: 20170126, end: 20170126
  18. INFLECTRA [Suspect]
     Active Substance: INFLIXIMAB-DYYB
     Dosage: 766 MG (7 MG/KG) EVERY 8 WEEKS
     Route: 042
     Dates: start: 20200420
  19. INFLECTRA [Suspect]
     Active Substance: INFLIXIMAB-DYYB
     Dosage: 742 MG, EVERY 8 WEEKS
     Route: 042
     Dates: start: 20200804
  20. INFLECTRA [Suspect]
     Active Substance: INFLIXIMAB-DYYB
     Dosage: 742 MG, EVERY 8 WEEKS
     Route: 042
     Dates: start: 20200930
  21. ACETAMINOPHEN. [Concomitant]
     Active Substance: ACETAMINOPHEN
     Dosage: 1G,
     Route: 048
     Dates: start: 20190926
  22. CRESTOR [Concomitant]
     Active Substance: ROSUVASTATIN CALCIUM
     Dosage: 40 MG, 1X/DAY
     Route: 048
  23. METHOTREXATE SODIUM. [Concomitant]
     Active Substance: METHOTREXATE SODIUM
     Indication: RHEUMATOID ARTHRITIS
     Dosage: 25 MG, WEEKLY
     Route: 058
     Dates: start: 20131219
  24. INFLECTRA [Suspect]
     Active Substance: INFLIXIMAB-DYYB
     Dosage: 293 MG, EVERY 0, 2, 6 WEEKS, THEN EVERY 8 WEEKS
     Route: 042
     Dates: start: 20170126, end: 20170126
  25. INFLECTRA [Suspect]
     Active Substance: INFLIXIMAB-DYYB
     Dosage: 545 MG, EVERY 8 WEEKS
     Route: 042
     Dates: start: 20181127
  26. INFLECTRA [Suspect]
     Active Substance: INFLIXIMAB-DYYB
     Dosage: 766MG (8 VIALS), EVERY 8 WEEKS
     Route: 042
     Dates: start: 20190527
  27. FOLIC ACID. [Concomitant]
     Active Substance: FOLIC ACID
     Dosage: 5 MG, 1X/DAY(5 MG 1 TABLET)
     Route: 048
  28. NITRO?SPRAY [Concomitant]
     Active Substance: ISOSORBIDE DINITRATE
     Dosage: UNK, AS NEEDED
     Route: 060
  29. INFLECTRA [Suspect]
     Active Substance: INFLIXIMAB-DYYB
     Dosage: 766MG (8 VIALS), EVERY 8 WEEKS
     Route: 042
     Dates: start: 20190722
  30. INFLECTRA [Suspect]
     Active Substance: INFLIXIMAB-DYYB
     Dosage: 766 MG (7 MG/KG) EVERY 8 WEEKS
     Route: 042
     Dates: start: 20200603
  31. INFLECTRA [Suspect]
     Active Substance: INFLIXIMAB-DYYB
     Dosage: 763 MG
     Route: 042
     Dates: start: 20200804
  32. ACETAMINOPHEN. [Concomitant]
     Active Substance: ACETAMINOPHEN
     Indication: PREMEDICATION
     Dosage: 1 G, UNK (PRE?INFLECTRA)
     Route: 048
  33. FE [Concomitant]
     Active Substance: IRON
     Dosage: (300MG )1 DF, 3X/DAY
     Route: 048
  34. METHYLPREDNISOLONE. [Concomitant]
     Active Substance: METHYLPREDNISOLONE
     Indication: PREMEDICATION
     Dosage: 100 MG, UNK
     Route: 042
     Dates: start: 20190926, end: 20190926
  35. INFLECTRA [Suspect]
     Active Substance: INFLIXIMAB-DYYB
     Indication: RHEUMATOID ARTHRITIS
     Dosage: 333 MG, 2, 6 WEEKS, THEN EVERY 8 WEEKS
     Route: 042
     Dates: start: 20170126
  36. INFLECTRA [Suspect]
     Active Substance: INFLIXIMAB-DYYB
     Dosage: 545 MG, EVERY 8 WEEKS
     Route: 042
     Dates: start: 20180410
  37. INFLECTRA [Suspect]
     Active Substance: INFLIXIMAB-DYYB
     Dosage: 766 MG, EVERY 8 WEEKS
     Route: 042
     Dates: start: 20191126
  38. CETIRIZINE [Concomitant]
     Active Substance: CETIRIZINE HYDROCHLORIDE
     Indication: PREMEDICATION
     Dosage: 20 MG, UNK
     Route: 048
  39. CO ESCITALOPRAM [Concomitant]
     Dosage: 10 MG, 1X/DAY
     Route: 048
  40. SULFASALAZINE. [Concomitant]
     Active Substance: SULFASALAZINE
     Indication: RHEUMATOID ARTHRITIS
     Dosage: 2000 MG, 1X/DAY (500 MG 4 TABLETS)
     Dates: start: 201211
  41. SOLU?CORTEF [Concomitant]
     Active Substance: HYDROCORTISONE SODIUM SUCCINATE
     Indication: PREMEDICATION
     Dosage: 100 MG, PRE INFLECTRA
     Route: 042

REACTIONS (13)
  - Throat irritation [Recovered/Resolved]
  - Inappropriate schedule of product administration [Unknown]
  - Incorrect dose administered [Unknown]
  - Condition aggravated [Unknown]
  - Body temperature decreased [Unknown]
  - Cough [Recovered/Resolved]
  - Product use issue [Unknown]
  - Blood pressure increased [Unknown]
  - Hypokinesia [Unknown]
  - Infusion site extravasation [Unknown]
  - Death [Fatal]
  - Abdominal discomfort [Not Recovered/Not Resolved]
  - Pain [Not Recovered/Not Resolved]

NARRATIVE: CASE EVENT DATE: 20180214
